FAERS Safety Report 8102115-3 (Version None)
Quarter: 2012Q1

REPORT INFORMATION
  Report Type: 
  Country: None (occurrence: None)
  Receive Date: 20120131
  Receipt Date: 20120116
  Transmission Date: 20120608
  Serious: Yes (Hospitalization)
  Sender: FDA-Public Use
  Company Number: DE-AMGEN-DEUCT2011064697

PATIENT
  Age: 44 Year
  Sex: Male
  Weight: 90 kg

DRUGS (10)
  1. IBUPROFEN [Concomitant]
  2. FOLIC ACID [Concomitant]
  3. ETANERCEPT [Suspect]
     Dosage: 50 MG, WEEKLY
     Route: 058
     Dates: start: 20110520, end: 20110926
  4. METHOTREXATE SODIUM [Concomitant]
     Indication: PSORIATIC ARTHROPATHY
     Dosage: 20 MG, WEEKLY
     Route: 058
     Dates: start: 20030101
  5. ETANERCEPT [Suspect]
     Indication: PSORIATIC ARTHROPATHY
     Dosage: 50 MG, WEEKLY
     Route: 058
     Dates: start: 20110520, end: 20110926
  6. IBUPROFEN [Concomitant]
     Indication: PSORIATIC ARTHROPATHY
     Dosage: 1600 MG, DAILY
     Route: 048
     Dates: start: 20110701
  7. FOLIC ACID [Concomitant]
     Indication: PSORIATIC ARTHROPATHY
     Dosage: 5 MG, WEEKLY
     Route: 048
     Dates: start: 20030101
  8. PANTOZOL P20 [Concomitant]
     Indication: PROPHYLAXIS AGAINST GASTROINTESTINAL ULCER
     Dosage: 20 MG, DAILY
     Route: 048
     Dates: start: 20100301
  9. PANTOPRAZOLE [Concomitant]
     Indication: PROPHYLAXIS AGAINST GASTROINTESTINAL ULCER
     Dosage: 20 MG, DAILY
     Route: 048
     Dates: start: 20100301
  10. METHOTREXATE SODIUM [Concomitant]

REACTIONS (1)
  - MYELITIS [None]
